FAERS Safety Report 25991111 (Version 1)
Quarter: 2025Q4

REPORT INFORMATION
  Report Type: Spontaneous
  Country: JP (occurrence: JP)
  Receive Date: 20251103
  Receipt Date: 20251103
  Transmission Date: 20260117
  Serious: Yes (Death)
  Sender: MERCK SHARP & DOHME LLC
  Company Number: JP-009507513-2259253

PATIENT
  Age: 59 Year
  Sex: Male

DRUGS (2)
  1. KEYTRUDA [Suspect]
     Active Substance: PEMBROLIZUMAB
     Indication: Bladder transitional cell carcinoma recurrent
     Dosage: 3 COURSES
     Route: 041
     Dates: start: 20241128, end: 20250109
  2. PADCEV [Suspect]
     Active Substance: ENFORTUMAB VEDOTIN-EJFV
     Indication: Bladder transitional cell carcinoma recurrent
     Dosage: TIME INTERVAL: CYCLICAL: 1.25 MG/KG X 1 TIME EVERY WEEK, (2 PITCHES, 1 REST)
     Route: 041
     Dates: start: 20241128, end: 20250116

REACTIONS (1)
  - Malignant neoplasm progression [Fatal]

NARRATIVE: CASE EVENT DATE: 20250109
